FAERS Safety Report 26209781 (Version 1)
Quarter: 2025Q4

REPORT INFORMATION
  Report Type: Spontaneous
  Country: EU (occurrence: EU)
  Receive Date: 20251229
  Receipt Date: 20251229
  Transmission Date: 20260117
  Serious: Yes (Hospitalization)
  Sender: FRESENIUS KABI
  Company Number: None

PATIENT
  Age: 80 Year
  Sex: Female
  Weight: 86 kg

DRUGS (1)
  1. PACLITAXEL [Suspect]
     Active Substance: PACLITAXEL
     Indication: Breast cancer
     Dosage: AM 02.12.2025 148,8 MG
     Route: 042
     Dates: start: 20251202

REACTIONS (3)
  - Pyrexia [Not Recovered/Not Resolved]
  - Gait disturbance [Not Recovered/Not Resolved]
  - General physical health deterioration [Not Recovered/Not Resolved]

NARRATIVE: CASE EVENT DATE: 20251209
